FAERS Safety Report 12647023 (Version 2)
Quarter: 2016Q3

REPORT INFORMATION
  Report Type: Spontaneous
  Country: IT (occurrence: IT)
  Receive Date: 20160812
  Receipt Date: 20160818
  Transmission Date: 20161109
  Serious: Yes (Hospitalization)
  Sender: FDA-Public Use
  Company Number: IT-ROCHE-1812576

PATIENT
  Age: 54 Year
  Sex: Female

DRUGS (11)
  1. ARCOXIA [Concomitant]
     Active Substance: ETORICOXIB
     Indication: PAIN
     Route: 048
  2. XANAX [Concomitant]
     Active Substance: ALPRAZOLAM
     Indication: INSOMNIA
     Route: 048
  3. ORALBALANCE [Concomitant]
     Route: 061
  4. METHOTREXATE. [Concomitant]
     Active Substance: METHOTREXATE
     Route: 048
  5. DIBASE [Concomitant]
     Active Substance: CHOLECALCIFEROL
     Dosage: 25,000 INTERNATIONAL UNITS, IN THOUSANDS
     Route: 048
  6. BARACLUDE [Concomitant]
     Active Substance: ENTECAVIR
     Indication: LIVER DISORDER
     Route: 048
  7. PANTOPRAZOLE [Concomitant]
     Active Substance: PANTOPRAZOLE SODIUM
     Route: 048
  8. VEA ORIS [Concomitant]
     Route: 061
  9. MUCOSYTE [Concomitant]
     Route: 061
  10. ROACTEMRA [Suspect]
     Active Substance: TOCILIZUMAB
     Indication: RHEUMATOID ARTHRITIS
     Dosage: 20 MG/ML CONCENTRATE FOR SOLUTION FOR INFUSION
     Route: 058
     Dates: start: 20150701, end: 20160629
  11. ALENDRONATO [Concomitant]
     Active Substance: ALENDRONATE SODIUM
     Dosage: ^70 MG TABLETS^ 8 TABLETS IN A PVC/AL BLISTER PACK
     Route: 048

REACTIONS (9)
  - Aphthous ulcer [Recovered/Resolved]
  - Headache [Recovered/Resolved]
  - Impetigo [Recovering/Resolving]
  - Skin lesion [Recovering/Resolving]
  - Sinusitis [Recovered/Resolved]
  - Dyspnoea [Recovered/Resolved]
  - Eye pain [Recovered/Resolved]
  - Oral pain [Recovered/Resolved]
  - Rash vesicular [Recovering/Resolving]

NARRATIVE: CASE EVENT DATE: 20151101
